FAERS Safety Report 19454447 (Version 1)
Quarter: 2021Q2

REPORT INFORMATION
  Report Type: Spontaneous
  Country: CA (occurrence: CA)
  Receive Date: 20210623
  Receipt Date: 20210623
  Transmission Date: 20210717
  Serious: Yes (Other)
  Sender: FDA-Public Use
  Company Number: CA-SA-2021SA199184

PATIENT
  Age: 53 Year
  Sex: Female
  Weight: 46.8 kg

DRUGS (2)
  1. LEFLUNOMIDE. [Suspect]
     Active Substance: LEFLUNOMIDE
     Indication: RHEUMATOID ARTHRITIS
     Dosage: AUGUST 2020 FOR 3 MONTHS
     Dates: start: 202008, end: 202010
  2. METHOTREXATE. [Suspect]
     Active Substance: METHOTREXATE
     Indication: RHEUMATOID ARTHRITIS
     Dosage: JUN2020 TO DEC2020
     Dates: start: 202006, end: 202012

REACTIONS (3)
  - Alopecia [Unknown]
  - Hepatic enzyme increased [Unknown]
  - Nausea [Unknown]
